FAERS Safety Report 20591662 (Version 1)
Quarter: 2022Q1

REPORT INFORMATION
  Report Type: Spontaneous
  Country: FR (occurrence: FR)
  Receive Date: 20220314
  Receipt Date: 20220314
  Transmission Date: 20220423
  Serious: Yes (Hospitalization)
  Sender: FDA-Public Use
  Company Number: None

PATIENT
  Age: 23 Year
  Sex: Female

DRUGS (2)
  1. XANAX [Suspect]
     Active Substance: ALPRAZOLAM
     Indication: Suicide attempt
     Dosage: 30 DF
     Route: 048
     Dates: start: 20210225, end: 20210225
  2. XANAX [Suspect]
     Active Substance: ALPRAZOLAM
     Dosage: 30 DF
     Route: 048
     Dates: start: 20210226, end: 20210226

REACTIONS (3)
  - Headache [Recovered/Resolved]
  - Vertigo [Recovered/Resolved]
  - Somnolence [Recovered/Resolved]

NARRATIVE: CASE EVENT DATE: 20210226
